FAERS Safety Report 6694904-7 (Version None)
Quarter: 2010Q2

REPORT INFORMATION
  Report Type: 
  Country: None (occurrence: None)
  Receive Date: 20100423
  Receipt Date: 20100414
  Transmission Date: 20101027
  Serious: Yes (Hospitalization)
  Sender: FDA-Public Use
  Company Number: US-JNJFOC-20100404184

PATIENT
  Sex: Female
  Weight: 90.72 kg

DRUGS (11)
  1. DURAGESIC-100 [Suspect]
     Indication: ARTHRALGIA
     Dosage: 100 UG/HR AND  50 UG/HR
     Route: 062
  2. DURAGESIC-100 [Suspect]
     Dosage: 100 UG/HR AND  50 UG/HR
     Route: 062
  3. DURAGESIC-100 [Suspect]
     Dosage: 100 UG/HR AND 50 UG/HR
     Route: 062
  4. METHOTREXATE [Concomitant]
     Indication: RHEUMATOID ARTHRITIS
     Route: 048
  5. KLONOPIN [Concomitant]
     Indication: ANXIETY
     Route: 048
  6. PROZAC [Concomitant]
     Indication: ANXIETY
     Route: 048
  7. ELAVIL [Concomitant]
     Route: 048
  8. DIOVAN [Concomitant]
     Indication: HYPERTENSION
     Route: 048
  9. LASIX [Concomitant]
     Indication: HYPERTENSION
     Route: 048
  10. FOLIC ACID [Concomitant]
     Route: 048
  11. POTASSIUM CHLORIDE [Concomitant]
     Route: 048

REACTIONS (6)
  - ARTHROPATHY [None]
  - CONDITION AGGRAVATED [None]
  - DYSPHONIA [None]
  - GAIT DISTURBANCE [None]
  - PRODUCTIVE COUGH [None]
  - TREMOR [None]
